FAERS Safety Report 5334168-X (Version None)
Quarter: 2007Q2

REPORT INFORMATION
  Report Type: 
  Country: None (occurrence: None)
  Receive Date: 20070511
  Receipt Date: 20070425
  Transmission Date: 20071010
  Serious: Yes (Hospitalization)
  Sender: FDA-Public Use
  Company Number: WSDF_00486

PATIENT
  Age: 26 Year
  Sex: Female
  Weight: 83 kg

DRUGS (1)
  1. WINRHO SDF [Suspect]
     Indication: FOETAL-MATERNAL HAEMORRHAGE
     Dosage: 4200 MCG ONCE IV
     Route: 042
     Dates: start: 20050708, end: 20050708

REACTIONS (12)
  - BREAST PAIN [None]
  - CHILLS [None]
  - DRUG EXPOSURE DURING PREGNANCY [None]
  - FEELING HOT [None]
  - FLUSHING [None]
  - FOETAL-MATERNAL HAEMORRHAGE [None]
  - INFUSION RELATED REACTION [None]
  - INTRA-UTERINE DEATH [None]
  - KLEIHAUER-BETKE TEST [None]
  - MEDICATION ERROR [None]
  - MYALGIA [None]
  - OVERDOSE [None]
